FAERS Safety Report 25974114 (Version 5)
Quarter: 2025Q4

REPORT INFORMATION
  Report Type: Spontaneous
  Country: EU (occurrence: EU)
  Receive Date: 20251029
  Receipt Date: 20251217
  Transmission Date: 20260118
  Serious: Yes (Hospitalization, Other)
  Sender: ROCHE
  Company Number: EU-ROCHE-10000408138

PATIENT
  Age: 79 Year
  Sex: Female

DRUGS (1)
  1. VABYSMO [Suspect]
     Active Substance: FARICIMAB-SVOA
     Indication: Age-related macular degeneration

REACTIONS (2)
  - Toxic anterior segment syndrome [Recovering/Resolving]
  - Uveitis [Recovering/Resolving]
